FAERS Safety Report 8916847 (Version 1)
Quarter: 2012Q4

REPORT INFORMATION
  Report Type: 
  Country: US (occurrence: US)
  Receive Date: 20121120
  Receipt Date: 20121120
  Transmission Date: 20130627
  Serious: No
  Sender: FDA-Public Use
  Company Number: US-PFIZER INC-2012285793

PATIENT
  Age: 56 Year
  Sex: Male

DRUGS (2)
  1. SUNITINIB MALATE [Suspect]
     Indication: RENAL CELL CARCINOMA
     Dosage: 50 mg, 4 weeks on and 2 week off in Mar2010.
     Dates: start: 201003
  2. SUNITINIB MALATE [Suspect]
     Dosage: 37.5 mg, 2 weeks on and 1 week off
     Dates: end: 201203

REACTIONS (3)
  - Palmar-plantar erythrodysaesthesia syndrome [Unknown]
  - Diarrhoea [Unknown]
  - Neuropathy peripheral [Unknown]
